FAERS Safety Report 14454563 (Version 2)
Quarter: 2018Q3

REPORT INFORMATION
  Report Type: Report from Study
  Country: US (occurrence: US)
  Receive Date: 20180129
  Receipt Date: 20180719
  Transmission Date: 20181010
  Serious: Yes (Other)
  Sender: FDA-Public Use
  Company Number: US-AMGEN-USASL2017159258

PATIENT
  Age: 81 Year
  Sex: Male

DRUGS (2)
  1. REPATHA [Suspect]
     Active Substance: EVOLOCUMAB
     Indication: HYPERLIPIDAEMIA
     Dosage: 140 MG, QMO
     Route: 065
     Dates: start: 201705
  2. REPATHA [Suspect]
     Active Substance: EVOLOCUMAB
     Dosage: 140 MG, EVERY 28 DAYS
     Route: 065

REACTIONS (2)
  - Off label use [Unknown]
  - Rash pruritic [Unknown]

NARRATIVE: CASE EVENT DATE: 201709
